FAERS Safety Report 5350966-0 (Version None)
Quarter: 2007Q2

REPORT INFORMATION
  Report Type: 
  Country: None (occurrence: None)
  Receive Date: 20070606
  Receipt Date: 20070522
  Transmission Date: 20071010
  Serious: Yes (Other)
  Sender: FDA-Public Use
  Company Number: 013639

PATIENT
  Age: 17 Year
  Sex: Male
  Weight: 83.9 kg

DRUGS (2)
  1. AMPHETAMINE SALT COMBO (DEXTROAMPHETAMINE SULFATE, AMPHETAMINE SULFATE [Suspect]
     Indication: ATTENTION DEFICIT/HYPERACTIVITY DISORDER
     Dosage: 1-2 TABLETS, QD, ORAL
     Route: 048
     Dates: start: 20061101, end: 20070401
  2. CENTRUM (VITAMINS NOS, MINERALS NOS) [Concomitant]

REACTIONS (4)
  - BLEPHAROSPASM [None]
  - EYE INJURY [None]
  - VITREOUS DETACHMENT [None]
  - VITREOUS FLOATERS [None]
